FAERS Safety Report 13581556 (Version 4)
Quarter: 2018Q1

REPORT INFORMATION
  Report Type: Report from Study
  Country: IT (occurrence: IT)
  Receive Date: 20170525
  Receipt Date: 20180308
  Transmission Date: 20180508
  Serious: Yes (Other)
  Sender: FDA-Public Use
  Company Number: IT-ACCORD-051660

PATIENT
  Age: 18 Year
  Sex: Female

DRUGS (6)
  1. DUFASTON [Suspect]
     Active Substance: DYDROGESTERONE
     Dosage: STRENGTH: 10 MG
     Route: 048
     Dates: start: 20170501, end: 20170501
  2. DELTACORTENE [Suspect]
     Active Substance: PREDNISONE
     Dosage: STRENGTH: 25 MG
     Route: 048
     Dates: start: 20170501, end: 20170501
  3. KEPPRA [Suspect]
     Active Substance: LEVETIRACETAM
     Dosage: STRENGTH: 1000 MG
     Route: 048
     Dates: start: 20170501, end: 20170501
  4. FLUCONAZOLE. [Suspect]
     Active Substance: FLUCONAZOLE
     Dosage: DOSE: 1 DF TOTAL
     Route: 048
     Dates: start: 20170501, end: 20170501
  5. CELECOXIB. [Suspect]
     Active Substance: CELECOXIB
     Dosage: DOSE: 2 DF TOTAL
     Route: 048
     Dates: start: 20170501, end: 20170501
  6. RAMIPRIL. [Suspect]
     Active Substance: RAMIPRIL
     Route: 048
     Dates: start: 20170501, end: 20170501

REACTIONS (4)
  - Toxicity to various agents [Unknown]
  - Drug abuse [Unknown]
  - Headache [Unknown]
  - Intentional self-injury [Unknown]

NARRATIVE: CASE EVENT DATE: 20170501
